FAERS Safety Report 11752869 (Version 1)
Quarter: 2015Q4

REPORT INFORMATION
  Report Type: Report from Study
  Country: US (occurrence: US)
  Receive Date: 20151119
  Receipt Date: 20151119
  Transmission Date: 20160304
  Serious: No
  Sender: FDA-Public Use
  Company Number: US-AMGEN-USASL2015118889

PATIENT
  Age: 29 Year
  Sex: Female

DRUGS (1)
  1. ENBREL [Suspect]
     Active Substance: ETANERCEPT
     Indication: RHEUMATOID ARTHRITIS
     Dosage: 50 MG, QWK
     Route: 065
     Dates: start: 2015

REACTIONS (8)
  - Rubber sensitivity [Unknown]
  - Throat irritation [Unknown]
  - Injection site reaction [Recovered/Resolved]
  - Wheezing [Unknown]
  - Urticaria [Unknown]
  - Pruritus [Unknown]
  - Injection site pruritus [Unknown]
  - Erythema [Unknown]

NARRATIVE: CASE EVENT DATE: 2015
